FAERS Safety Report 24561003 (Version 2)
Quarter: 2024Q4

REPORT INFORMATION
  Report Type: Spontaneous
  Country: JP (occurrence: JP)
  Receive Date: 20241029
  Receipt Date: 20241220
  Transmission Date: 20250115
  Serious: Yes (Hospitalization)
  Sender: ELI LILLY AND COMPANY
  Company Number: JP-ELI_LILLY_AND_COMPANY-JP202410014018

PATIENT
  Age: 74 Year
  Sex: Male
  Weight: 78.1 kg

DRUGS (16)
  1. CYRAMZA [Suspect]
     Active Substance: RAMUCIRUMAB
     Indication: Rectosigmoid cancer
     Dosage: 670 MG
     Route: 041
     Dates: start: 20240821, end: 20240821
  2. IRINOTECAN HYDROCHLORIDE [Suspect]
     Active Substance: IRINOTECAN HYDROCHLORIDE
     Indication: Rectosigmoid cancer
     Dosage: 280 MG
     Route: 041
     Dates: start: 20240821, end: 20240821
  3. FLUOROURACIL [Suspect]
     Active Substance: FLUOROURACIL
     Indication: Rectosigmoid cancer
     Dosage: 5190 MG
     Route: 041
     Dates: start: 20240821, end: 20240821
  4. LEVOLEUCOVORIN CALCIUM [Suspect]
     Active Substance: LEVOLEUCOVORIN CALCIUM
     Indication: Rectosigmoid cancer
     Dosage: 390 MG
     Route: 041
     Dates: start: 20240821, end: 20240821
  5. PALONOSETRON [Concomitant]
     Active Substance: PALONOSETRON
     Dosage: UNK
     Route: 041
     Dates: start: 20240821, end: 20240821
  6. FOSNETUPITANT CHLORIDE HYDROCHLORIDE [Concomitant]
     Active Substance: FOSNETUPITANT CHLORIDE HYDROCHLORIDE
     Dosage: UNK
     Route: 041
     Dates: start: 20240821, end: 20240821
  7. DEXAMETHASONE SODIUM PHOSPHATE [Concomitant]
     Active Substance: DEXAMETHASONE SODIUM PHOSPHATE
     Dosage: UNK
     Route: 042
     Dates: start: 20240821, end: 20240821
  8. POLARAMINE [Concomitant]
     Active Substance: DEXCHLORPHENIRAMINE MALEATE
     Dosage: UNK
     Route: 042
     Dates: start: 20240821, end: 20240821
  9. ELSAMET [Concomitant]
     Route: 048
  10. SILODOSIN OD DSEP [Concomitant]
     Route: 048
  11. HERBALS [Concomitant]
     Active Substance: HERBALS
     Dosage: UNK
     Route: 048
     Dates: start: 20220620
  12. DECADRON [Concomitant]
     Active Substance: DEXAMETHASONE
     Dosage: UNK
     Route: 048
     Dates: start: 20240822, end: 20240823
  13. NEXIUM [Concomitant]
     Active Substance: ESOMEPRAZOLE MAGNESIUM
     Dosage: UNK
     Route: 048
     Dates: start: 20220620, end: 20240903
  14. VOLTAREN [Concomitant]
     Active Substance: DICLOFENAC SODIUM
     Dosage: UNK
     Route: 050
     Dates: start: 20240710, end: 20240903
  15. PREDNISOLONE VALERATE ACETATE [Concomitant]
     Active Substance: PREDNISOLONE VALERATE ACETATE
     Dosage: UNK
     Route: 062
     Dates: start: 20240807
  16. RINDERON V [Concomitant]
     Active Substance: BETAMETHASONE VALERATE
     Dosage: UNK
     Route: 062
     Dates: start: 20240807

REACTIONS (1)
  - Pulmonary toxicity [Recovering/Resolving]

NARRATIVE: CASE EVENT DATE: 20240904
